FAERS Safety Report 24901048 (Version 1)
Quarter: 2025Q1

REPORT INFORMATION
  Report Type: Spontaneous
  Country: KR (occurrence: KR)
  Receive Date: 20250129
  Receipt Date: 20250129
  Transmission Date: 20250408
  Serious: Yes (Other)
  Sender: TAKEDA
  Company Number: KR-LUNDBECK-DKLU4009658

PATIENT
  Age: 83 Year
  Sex: Female

DRUGS (9)
  1. BRINTELLIX [Suspect]
     Active Substance: VORTIOXETINE HYDROBROMIDE
     Indication: Product used for unknown indication
  2. BRINTELLIX [Suspect]
     Active Substance: VORTIOXETINE HYDROBROMIDE
  3. OLANZAPINE [Concomitant]
     Active Substance: OLANZAPINE
     Indication: Delusion
  4. OLANZAPINE [Concomitant]
     Active Substance: OLANZAPINE
     Indication: Suicidal ideation
  5. QUETIAPINE [Concomitant]
     Active Substance: QUETIAPINE
     Indication: Product used for unknown indication
  6. QUETIAPINE [Concomitant]
     Active Substance: QUETIAPINE
  7. QUETIAPINE [Concomitant]
     Active Substance: QUETIAPINE
  8. PROPRANOLOL [Concomitant]
     Active Substance: PROPRANOLOL HYDROCHLORIDE
     Indication: Product used for unknown indication
  9. PROPRANOLOL [Concomitant]
     Active Substance: PROPRANOLOL HYDROCHLORIDE

REACTIONS (6)
  - Delirium [Unknown]
  - Hallucination, visual [Unknown]
  - Suicidal ideation [Recovered/Resolved]
  - Disorientation [Unknown]
  - Delusion [Recovered/Resolved]
  - Depression [Unknown]
